FAERS Safety Report 25629853 (Version 1)
Quarter: 2025Q3

REPORT INFORMATION
  Report Type: Spontaneous
  Country: EU (occurrence: EU)
  Receive Date: 20250731
  Receipt Date: 20250731
  Transmission Date: 20251021
  Serious: Yes (Hospitalization, Other)
  Sender: CELLTRION
  Company Number: EU-PFIZER INC-PV202500048709

PATIENT

DRUGS (5)
  1. RITUXIMAB [Suspect]
     Active Substance: RITUXIMAB
     Indication: Castleman^s disease
  2. CYCLOPHOSPHAMIDE [Suspect]
     Active Substance: CYCLOPHOSPHAMIDE
     Indication: Castleman^s disease
  3. EPIRUBICIN [Suspect]
     Active Substance: EPIRUBICIN
     Indication: Castleman^s disease
  4. VINCRISTINE [Suspect]
     Active Substance: VINCRISTINE
     Indication: Castleman^s disease
  5. PREDNISOLONE [Suspect]
     Active Substance: PREDNISOLONE
     Indication: Castleman^s disease

REACTIONS (4)
  - Vasculitis [Recovered/Resolved]
  - Infection [Recovered/Resolved]
  - Cerebrovascular accident [Recovered/Resolved]
  - Intentional product use issue [Unknown]
